FAERS Safety Report 7626351-5 (Version None)
Quarter: 2011Q3

REPORT INFORMATION
  Report Type: 
  Country: None (occurrence: None)
  Receive Date: 20110721
  Receipt Date: 20110711
  Transmission Date: 20111222
  Serious: Yes (Other)
  Sender: FDA-Public Use
  Company Number: HU-SANOFI-AVENTIS-2011SA044721

PATIENT
  Sex: Female

DRUGS (1)
  1. CLOPIDOGREL BISULFATE [Suspect]
     Route: 065

REACTIONS (3)
  - CYSTOID MACULAR OEDEMA [None]
  - OCULAR ICTERUS [None]
  - VISUAL ACUITY REDUCED [None]
